FAERS Safety Report 26204893 (Version 1)
Quarter: 2025Q4

REPORT INFORMATION
  Report Type: Spontaneous
  Country: CA (occurrence: CA)
  Receive Date: 20251227
  Receipt Date: 20251227
  Transmission Date: 20260118
  Serious: Yes (Hospitalization)
  Sender: AUROBINDO
  Company Number: CA-AUROBINDO-AUR-APL-2025-066900

PATIENT
  Age: 46 Year
  Sex: Male

DRUGS (4)
  1. ROSUVASTATIN [Suspect]
     Active Substance: ROSUVASTATIN
     Indication: Dyslipidaemia
     Dosage: 20 MILLIGRAM
     Route: 065
  2. LITHIUM CARBONATE [Suspect]
     Active Substance: LITHIUM CARBONATE
     Indication: Mania
     Dosage: 1800 MILLIGRAM, ONCE A DAY
     Route: 065
  3. PSYLLIUM HUSK [Suspect]
     Active Substance: PSYLLIUM HUSK
     Indication: Decreased appetite
     Dosage: UNK
     Route: 065
  4. VITAMINS [Concomitant]
     Active Substance: VITAMINS
     Indication: Product used for unknown indication
     Dosage: UNK
     Route: 065

REACTIONS (3)
  - Abnormal behaviour [Recovering/Resolving]
  - Herbal interaction [Recovering/Resolving]
  - Job change [Recovering/Resolving]
